FAERS Safety Report 19230522 (Version 1)
Quarter: 2021Q2

REPORT INFORMATION
  Report Type: Spontaneous
  Country: US (occurrence: US)
  Receive Date: 20210507
  Receipt Date: 20210507
  Transmission Date: 20210717
  Serious: No
  Sender: FDA-Public Use
  Company Number: None

PATIENT
  Age: 63 Year
  Sex: Female
  Weight: 105.69 kg

DRUGS (2)
  1. RINVOQ [Suspect]
     Active Substance: UPADACITINIB
     Indication: ANKYLOSING SPONDYLITIS
     Dosage: ?          OTHER DOSE:TAKE 1 TABLET;?
     Route: 048
     Dates: start: 202008
  2. RINVOQ [Suspect]
     Active Substance: UPADACITINIB
     Indication: RHEUMATOID ARTHRITIS
     Dosage: ?          OTHER DOSE:TAKE 1 TABLET;?
     Route: 048
     Dates: start: 202008

REACTIONS (2)
  - COVID-19 [None]
  - Influenza [None]
